FAERS Safety Report 7943051-2 (Version None)
Quarter: 2011Q4

REPORT INFORMATION
  Report Type: 
  Country: None (occurrence: None)
  Receive Date: 20111128
  Receipt Date: 20111118
  Transmission Date: 20120403
  Serious: Yes (Hospitalization, Other)
  Sender: FDA-Public Use
  Company Number: AU-ASTRAZENECA-2011SE66554

PATIENT
  Age: 21260 Day
  Sex: Female
  Weight: 53.8 kg

DRUGS (25)
  1. MEROPENEM [Suspect]
     Indication: PNEUMONIA
     Dosage: CONTINUOUS INFUSION
     Route: 042
     Dates: start: 20111026, end: 20111028
  2. DEXTROSE 50% [Concomitant]
     Indication: HYPOGLYCAEMIA
     Route: 042
     Dates: start: 20111026, end: 20111109
  3. VITAMIN K TAB [Concomitant]
     Indication: SEPSIS
     Route: 042
     Dates: start: 20111026, end: 20111107
  4. METOCLOPRAMIDE [Concomitant]
     Indication: IMPAIRED GASTRIC EMPTYING
     Route: 042
     Dates: start: 20111026, end: 20111103
  5. MULTI-VITAMIN [Concomitant]
     Indication: ELECTROLYTE SUBSTITUTION THERAPY
     Route: 048
     Dates: start: 20111026, end: 20111107
  6. VENTOLIN [Concomitant]
     Indication: ACUTE RESPIRATORY DISTRESS SYNDROME
     Route: 055
     Dates: start: 20111030, end: 20111101
  7. AZITHROMYCIN [Concomitant]
     Indication: SEPSIS
     Route: 042
     Dates: start: 20111025, end: 20111026
  8. MEROPENEM [Suspect]
     Indication: MULTI-ORGAN FAILURE
     Dosage: CONTINUOUS INFUSION
     Route: 042
     Dates: start: 20111026, end: 20111028
  9. VANCOMYCIN [Concomitant]
     Indication: SEPSIS
     Route: 042
     Dates: start: 20111026, end: 20111026
  10. VANCOMYCIN [Concomitant]
     Dosage: CONTINUOUS INFUSION
     Route: 042
     Dates: start: 20111027, end: 20111028
  11. MICONAZOLE [Concomitant]
     Indication: PERIPROCTITIS
     Route: 003
     Dates: start: 20111108
  12. MAGNESIUM SULFATE [Concomitant]
     Indication: ELECTROLYTE SUBSTITUTION THERAPY
     Route: 042
     Dates: start: 20111026, end: 20111111
  13. PROPOFOL [Concomitant]
     Indication: SEDATIVE THERAPY
     Route: 042
     Dates: start: 20111026, end: 20111107
  14. FROSEMIDE [Concomitant]
     Indication: RENAL FAILURE ACUTE
     Route: 042
     Dates: start: 20111105
  15. K-ACETATE [Concomitant]
     Indication: ELECTROLYTE SUBSTITUTION THERAPY
     Route: 042
     Dates: start: 20111111
  16. THIAMINE HCL [Concomitant]
     Indication: ALCOHOL ABUSE
     Route: 042
     Dates: start: 20111026, end: 20111107
  17. PANTROPRAZOLE [Concomitant]
     Indication: GASTRIC ULCER
     Route: 042
     Dates: start: 20111026, end: 20111108
  18. CEFTRIAXONE [Concomitant]
     Indication: SEPSIS
     Route: 042
     Dates: start: 20111025, end: 20111026
  19. PIPERACILLIN AND TAZOBACTAM [Concomitant]
     Indication: SEPSIS
     Route: 042
     Dates: start: 20111028, end: 20111031
  20. TRACE ELEMENT [Concomitant]
     Indication: ELECTROLYTE SUBSTITUTION THERAPY
     Route: 042
     Dates: start: 20111026, end: 20111107
  21. ERYTHROMYCIN [Concomitant]
     Indication: IMPAIRED GASTRIC EMPTYING
     Route: 042
     Dates: start: 20111027, end: 20111103
  22. HEPARIN [Concomitant]
     Indication: DEEP VEIN THROMBOSIS
     Route: 058
     Dates: start: 20111002, end: 20111109
  23. SLOW-K [Concomitant]
     Indication: ELECTROLYTE SUBSTITUTION THERAPY
     Route: 048
     Dates: start: 20111109, end: 20111111
  24. AZD9773 CODE NOT BROKEN [Concomitant]
     Indication: SEPSIS
     Dosage: BID
     Route: 042
     Dates: start: 20111026, end: 20111030
  25. POTASSIUM CHLORIDE [Concomitant]
     Indication: ELECTROLYTE SUBSTITUTION THERAPY
     Route: 042
     Dates: start: 20111028, end: 20111104

REACTIONS (3)
  - GASTROINTESTINAL HAEMORRHAGE [None]
  - HEPATIC INFECTION FUNGAL [None]
  - LIVER FUNCTION TEST ABNORMAL [None]
